FAERS Safety Report 9769030 (Version 1)
Quarter: 2013Q4

REPORT INFORMATION
  Report Type: Spontaneous
  Country: DE (occurrence: DE)
  Receive Date: 20131218
  Receipt Date: 20131218
  Transmission Date: 20140711
  Serious: Yes (Other)
  Sender: FDA-Public Use
  Company Number: DE-BAYER-2013-154430

PATIENT
  Age: 71 Year
  Sex: Male

DRUGS (1)
  1. LEVITRA [Suspect]
     Indication: PRODUCT USED FOR UNKNOWN INDICATION
     Dosage: 10 MG, UNK
     Route: 048
     Dates: start: 20131105, end: 20131105

REACTIONS (3)
  - Blood pressure increased [Recovered/Resolved]
  - Heart rate increased [Not Recovered/Not Resolved]
  - Headache [Recovered/Resolved]
